FAERS Safety Report 6357596-2 (Version None)
Quarter: 2009Q3

REPORT INFORMATION
  Report Type: 
  Country: None (occurrence: None)
  Receive Date: 20090916
  Receipt Date: 20090910
  Transmission Date: 20100115
  Serious: Yes (Hospitalization)
  Sender: FDA-Public Use
  Company Number: PHHO2008BE14619

PATIENT
  Sex: Female
  Weight: 69 kg

DRUGS (4)
  1. CGS 20267 T30748+TAB [Suspect]
     Indication: BREAST CANCER
     Dosage: 2.5 MG DAILY
     Route: 048
     Dates: start: 20041108
  2. ZOMETA [Suspect]
     Indication: BREAST CANCER
     Dosage: 4 MG EVERY 6 MONTHS
     Route: 042
     Dates: start: 20080508
  3. VITAMIN D [Concomitant]
  4. CALCIUM [Concomitant]

REACTIONS (1)
  - HIP FRACTURE [None]
